FAERS Safety Report 19071987 (Version 1)
Quarter: 2021Q1

REPORT INFORMATION
  Report Type: Spontaneous
  Country: US (occurrence: US)
  Receive Date: 20210329
  Receipt Date: 20210329
  Transmission Date: 20210420
  Serious: Yes (Other)
  Sender: FDA-Public Use
  Company Number: None

PATIENT
  Age: 21 Year
  Sex: Female
  Weight: 54 kg

DRUGS (5)
  1. MODERNA COVID?19 VACCINE [Suspect]
     Active Substance: CX-024414
     Dates: start: 20210312
  2. SUMATRIPTAN 100 MG [Concomitant]
     Active Substance: SUMATRIPTAN
  3. NARATRIPTAN [Concomitant]
     Active Substance: NARATRIPTAN HYDROCHLORIDE
     Dates: start: 20201210
  4. AIMOVIG [Suspect]
     Active Substance: ERENUMAB-AOOE
     Indication: MIGRAINE PROPHYLAXIS
     Dates: start: 20201210
  5. TIZANIDINE 4 MG [Concomitant]
     Active Substance: TIZANIDINE

REACTIONS (1)
  - Migraine [None]

NARRATIVE: CASE EVENT DATE: 20210313
